FAERS Safety Report 6220860-1 (Version None)
Quarter: 2009Q2

REPORT INFORMATION
  Report Type: 
  Country: None (occurrence: None)
  Receive Date: 20090610
  Receipt Date: 20090530
  Transmission Date: 20091009
  Serious: Yes (Other)
  Sender: FDA-Public Use
  Company Number: PHHY2009DE21622

PATIENT
  Sex: Female

DRUGS (1)
  1. EXJADE [Suspect]
     Indication: HAEMOSIDEROSIS
     Dosage: 1250 MG/DAY
     Route: 048
     Dates: start: 20080801

REACTIONS (3)
  - GASTRIC DISORDER [None]
  - VISION BLURRED [None]
  - VISUAL IMPAIRMENT [None]
